FAERS Safety Report 8032554-0 (Version None)
Quarter: 2012Q1

REPORT INFORMATION
  Report Type: 
  Country: None (occurrence: None)
  Receive Date: 20120110
  Receipt Date: 20110531
  Transmission Date: 20120608
  Serious: No
  Sender: FDA-Public Use
  Company Number: US-MYLANLABS-2011S1010021

PATIENT
  Age: 73 Year
  Sex: Female
  Weight: 54.89 kg

DRUGS (4)
  1. FENOFIBRATE [Suspect]
     Indication: BLOOD TRIGLYCERIDES INCREASED
     Route: 048
     Dates: start: 20110502, end: 20110510
  2. LISINOPRIL [Concomitant]
  3. LORAZEPAM [Concomitant]
  4. ATENOLOL [Concomitant]

REACTIONS (1)
  - URTICARIA [None]
